FAERS Safety Report 6160430-7 (Version None)
Quarter: 2009Q2

REPORT INFORMATION
  Report Type: 
  Country: None (occurrence: None)
  Receive Date: 20090420
  Receipt Date: 20090416
  Transmission Date: 20091009
  Serious: Yes (Hospitalization, Other)
  Sender: FDA-Public Use
  Company Number: DK-ROXANE LABORATORIES, INC.-2009-RO-00393RO

PATIENT
  Age: 34 Year
  Sex: Female

DRUGS (8)
  1. METHADONE HCL [Suspect]
     Indication: DRUG DEPENDENCE
     Dosage: 400MG
  2. METHADONE HCL [Suspect]
     Dosage: 100MG
  3. METHADONE HCL [Suspect]
     Dosage: 75MG
  4. METHADONE HCL [Suspect]
     Dosage: 25MG
  5. COCAINE [Suspect]
     Indication: DRUG DEPENDENCE
  6. KETOGAN [Suspect]
     Indication: DRUG ABUSE
  7. BENZODIAZEPINES [Suspect]
     Indication: DRUG ABUSE
  8. HEROIN [Concomitant]
     Indication: DRUG ABUSE
     Route: 042

REACTIONS (4)
  - DRUG DEPENDENCE [None]
  - DRUG INEFFECTIVE [None]
  - PSYCHOTIC BEHAVIOUR [None]
  - SOMNOLENCE [None]
